FAERS Safety Report 10063426 (Version 1)
Quarter: 2014Q2

REPORT INFORMATION
  Report Type: Spontaneous
  Country: US (occurrence: US)
  Receive Date: 20140407
  Receipt Date: 20140407
  Transmission Date: 20141212
  Serious: No
  Sender: FDA-Public Use
  Company Number: US-PFIZER INC-2014096331

PATIENT
  Age: 69 Year
  Sex: Female
  Weight: 85.26 kg

DRUGS (1)
  1. SUTENT [Suspect]
     Indication: RENAL CELL CARCINOMA
     Dosage: 25 MG, 1X/DAY
     Route: 048
     Dates: start: 2013, end: 201403

REACTIONS (2)
  - Disease progression [Unknown]
  - Renal cell carcinoma [Unknown]
